FAERS Safety Report 15422305 (Version 1)
Quarter: 2018Q3

REPORT INFORMATION
  Report Type: Spontaneous
  Country: CA (occurrence: CA)
  Receive Date: 20180924
  Receipt Date: 20180924
  Transmission Date: 20181010
  Serious: Yes (Life-Threatening, Other)
  Sender: FDA-Public Use
  Company Number: CA-BAXTER-2018BAX023985

PATIENT
  Age: 59 Year
  Sex: Female

DRUGS (9)
  1. AMPICILLIN TRIHYDRATE. [Suspect]
     Active Substance: AMPICILLIN TRIHYDRATE
     Indication: PERITONEAL CLOUDY EFFLUENT
     Dosage: DOSAGE FORM NOT SPECIFIED
     Route: 042
  2. VAL VANCOMYCIN [Suspect]
     Active Substance: VANCOMYCIN HYDROCHLORIDE
     Indication: LISTERIOSIS
     Dosage: VAL VANCOMYCIN 10 SINGLE DOSE VIALS, POWDER FOR SOLUTION INTRAVENOUS
     Route: 033
  3. SULFAMETHOXAZOLE AND TRIMETHOPRIM [Suspect]
     Active Substance: SULFAMETHOXAZOLE\TRIMETHOPRIM
     Indication: EVIDENCE BASED TREATMENT
  4. GENTAMICIN 100 MG [Suspect]
     Active Substance: GENTAMICIN
     Indication: LISTERIOSIS
     Dosage: DOSAGE FORM: INJECTION
     Route: 065
  5. AMPICILLIN TRIHYDRATE. [Suspect]
     Active Substance: AMPICILLIN TRIHYDRATE
     Indication: LISTERIOSIS
  6. CEFTAZIDIME SODIUM [Suspect]
     Active Substance: CEFTAZIDIME SODIUM
     Indication: LISTERIOSIS
     Dosage: DOSAGE FORM: POWDER FOR SOLUTION
     Route: 033
  7. CEFTAZIDIME SODIUM [Suspect]
     Active Substance: CEFTAZIDIME SODIUM
     Indication: PERITONEAL CLOUDY EFFLUENT
  8. VAL VANCOMYCIN [Suspect]
     Active Substance: VANCOMYCIN HYDROCHLORIDE
     Indication: PERITONEAL CLOUDY EFFLUENT
  9. SULFAMETHOXAZOLE AND TRIMETHOPRIM [Suspect]
     Active Substance: SULFAMETHOXAZOLE\TRIMETHOPRIM
     Indication: LISTERIOSIS
     Dosage: DOSAGE FORM NOT SPECIFIED
     Route: 042

REACTIONS (2)
  - Drug ineffective [Not Recovered/Not Resolved]
  - Drug hypersensitivity [Not Recovered/Not Resolved]
